FAERS Safety Report 9319885 (Version 1)
Quarter: 2013Q2

REPORT INFORMATION
  Report Type: Spontaneous
  Country: FR (occurrence: FR)
  Receive Date: 20130530
  Receipt Date: 20130530
  Transmission Date: 20140414
  Serious: Yes (Hospitalization)
  Sender: FDA-Public Use
  Company Number: FR-ASTRAZENECA-2013SE35997

PATIENT
  Age: 808 Month
  Sex: Male

DRUGS (8)
  1. BRILIQUE [Suspect]
     Indication: MYOCARDIAL ISCHAEMIA
     Route: 048
     Dates: start: 201303, end: 20130418
  2. AVLOCARDYL SR [Concomitant]
     Route: 065
  3. KARDEGIC [Concomitant]
     Route: 065
  4. LISINOPRIL [Concomitant]
     Route: 065
  5. FUROSEMIDE [Concomitant]
     Route: 065
  6. MOPRAL [Concomitant]
     Route: 065
  7. INSULINE LANTUS [Concomitant]
  8. HUMALOG [Concomitant]

REACTIONS (3)
  - Abnormal behaviour [Recovering/Resolving]
  - Confusional state [Recovering/Resolving]
  - Disorientation [Unknown]
